FAERS Safety Report 20437274 (Version 1)
Quarter: 2022Q1

REPORT INFORMATION
  Report Type: Report from Study
  Country: GB (occurrence: GB)
  Receive Date: 20220207
  Receipt Date: 20220207
  Transmission Date: 20220423
  Serious: Yes (Hospitalization)
  Sender: FDA-Public Use
  Company Number: GB-CELGENE-GBR-20220107056

PATIENT
  Age: 64 Year
  Sex: Female
  Weight: 40.3 kg

DRUGS (4)
  1. ABRAXANE [Suspect]
     Active Substance: PACLITAXEL
     Indication: Pancreatic carcinoma metastatic
     Dosage: CUMULATIVE DOSE 560MG
     Route: 041
     Dates: start: 20211125, end: 20220114
  2. ELOXATIN [Suspect]
     Active Substance: OXALIPLATIN
     Indication: Pancreatic carcinoma metastatic
     Dosage: CUMULATIVE DOSE 320MG
     Route: 041
     Dates: start: 20211125, end: 20220114
  3. FLUOROURACIL [Suspect]
     Active Substance: FLUOROURACIL
     Indication: Pancreatic carcinoma metastatic
     Dosage: CUMULATIVE DOSE 9100MG
     Route: 041
     Dates: start: 20211125, end: 20220116
  4. LEUCOVORIN [Suspect]
     Active Substance: LEUCOVORIN
     Indication: Pancreatic carcinoma metastatic
     Dosage: CUMULATIVE DOSE 1050MG
     Route: 041
     Dates: start: 20211125, end: 20220114

REACTIONS (2)
  - Infection [Recovered/Resolved]
  - Diarrhoea [Recovered/Resolved]

NARRATIVE: CASE EVENT DATE: 20220121
